FAERS Safety Report 8889621 (Version 1)
Quarter: 2012Q4

REPORT INFORMATION
  Report Type: Spontaneous
  Country: US (occurrence: None)
  Receive Date: 20121105
  Receipt Date: 20121105
  Transmission Date: 20130627
  Serious: No
  Sender: FDA-Public Use
  Company Number: None

PATIENT
  Sex: Male
  Weight: 92.08 kg

DRUGS (1)
  1. ANDROGEL [Suspect]
     Indication: TESTOSTERONE LOW
     Dosage: 5 Grams Per Unit DOSE 1 Per Day
     Dates: start: 20121013

REACTIONS (3)
  - Disorientation [None]
  - Irritability [None]
  - Self esteem inflated [None]
